FAERS Safety Report 19723693 (Version 1)
Quarter: 2021Q3

REPORT INFORMATION
  Report Type: Spontaneous
  Country: US (occurrence: US)
  Receive Date: 20210820
  Receipt Date: 20210820
  Transmission Date: 20211014
  Serious: No
  Sender: FDA-Public Use
  Company Number: US-CELLTRION INC.-2021US010248

PATIENT

DRUGS (13)
  1. RITUXIMAB (UNKNOWN) [Suspect]
     Active Substance: RITUXIMAB
     Indication: ENCEPHALITIS AUTOIMMUNE
  2. HALOPERIDOL. [Suspect]
     Active Substance: HALOPERIDOL
     Indication: ENCEPHALITIS AUTOIMMUNE
     Dosage: 5 MG THREE TIMES DAILY
  3. PREDNISONE. [Suspect]
     Active Substance: PREDNISONE
     Indication: ENCEPHALITIS AUTOIMMUNE
     Dosage: 60 MG, DAILY
  4. RITUXIMAB (UNKNOWN) [Suspect]
     Active Substance: RITUXIMAB
     Dosage: THIRD DOSE
  5. IMMUNOGLOBULIN I.V [Suspect]
     Active Substance: HUMAN IMMUNOGLOBULIN G
     Indication: ENCEPHALITIS AUTOIMMUNE
     Route: 042
  6. METHYLPREDNISOLONE. [Suspect]
     Active Substance: METHYLPREDNISOLONE
     Indication: ENCEPHALITIS AUTOIMMUNE
     Route: 042
  7. MEMANTINE. [Suspect]
     Active Substance: MEMANTINE
     Indication: ENCEPHALITIS AUTOIMMUNE
     Dosage: 5 MG, DAILY
  8. CLONAZEPAM. [Suspect]
     Active Substance: CLONAZEPAM
     Indication: ENCEPHALITIS AUTOIMMUNE
     Dosage: 1 MG THREE TIMES DAILY
  9. LORAZEPAM. [Suspect]
     Active Substance: LORAZEPAM
     Indication: ENCEPHALITIS AUTOIMMUNE
     Dosage: 2 MG EVERY SIX HOURS WAS COMMENCED AND TITRATED TO A HIGH DOSE
  10. IMMUNOGLOBULIN I.V [Suspect]
     Active Substance: HUMAN IMMUNOGLOBULIN G
     Dosage: 2 G/KG
     Route: 042
  11. GABAPENTIN. [Suspect]
     Active Substance: GABAPENTIN
     Indication: ENCEPHALITIS AUTOIMMUNE
  12. IMMUNOGLOBULIN I.V [Suspect]
     Active Substance: HUMAN IMMUNOGLOBULIN G
     Dosage: 1 G
     Route: 042
  13. AMANTADINE. [Suspect]
     Active Substance: AMANTADINE HYDROCHLORIDE
     Indication: ENCEPHALITIS AUTOIMMUNE
     Dosage: 100 MG TWICE A DAY

REACTIONS (2)
  - Off label use [Unknown]
  - Drug ineffective for unapproved indication [Unknown]
